FAERS Safety Report 4801195-8 (Version None)
Quarter: 2005Q4

REPORT INFORMATION
  Report Type: 
  Country: None (occurrence: None)
  Receive Date: 20051011
  Receipt Date: 20050912
  Transmission Date: 20060501
  Serious: Yes (Hospitalization)
  Sender: FDA-Public Use
  Company Number: 8012463

PATIENT
  Age: 53 Year
  Sex: Male

DRUGS (5)
  1. PREDNISOLONE [Suspect]
     Indication: HEART TRANSPLANT
     Dosage: 0.1 MG/KG/D
  2. PREDNISOLONE [Suspect]
     Indication: HEART TRANSPLANT
     Dosage: 1 MG/KG/D IV
     Route: 042
  3. PREDNISOLONE [Suspect]
     Indication: HEART TRANSPLANT
  4. CYCLOSPORINE [Suspect]
     Indication: HEART TRANSPLANT
  5. AZATHIOPRINE [Suspect]
     Indication: HEART TRANSPLANT
     Dosage: 1 MG/KD /D

REACTIONS (6)
  - ABDOMINAL PAIN [None]
  - COLITIS ULCERATIVE [None]
  - DIARRHOEA HAEMORRHAGIC [None]
  - MUCOSAL MEMBRANE HYPERPLASIA [None]
  - PYREXIA [None]
  - THERAPY NON-RESPONDER [None]
